FAERS Safety Report 4595558-6 (Version None)
Quarter: 2005Q1

REPORT INFORMATION
  Report Type: 
  Country: None (occurrence: None)
  Receive Date: 20050224
  Receipt Date: 20050207
  Transmission Date: 20050727
  Serious: Yes (Other)
  Sender: FDA-Public Use
  Company Number: USA050290362

PATIENT
  Age: 61 Year
  Sex: Female

DRUGS (2)
  1. STRATTERA [Suspect]
     Dosage: 40 MG DAY
     Dates: start: 20040325, end: 20050203
  2. CYMBALTA [Suspect]
     Dosage: 30 MG DAY
     Dates: start: 20041130

REACTIONS (1)
  - ALANINE AMINOTRANSFERASE INCREASED [None]
